FAERS Safety Report 15941549 (Version 1)
Quarter: 2019Q1

REPORT INFORMATION
  Report Type: Spontaneous
  Country: FR (occurrence: FR)
  Receive Date: 20190208
  Receipt Date: 20190208
  Transmission Date: 20190417
  Serious: Yes (Hospitalization)
  Sender: FDA-Public Use
  Company Number: FR-009507513-1902FRA000361

PATIENT
  Age: 70 Year
  Sex: Male
  Weight: 85 kg

DRUGS (8)
  1. NORSET [Suspect]
     Active Substance: MIRTAZAPINE
     Dosage: 15 MILLIGRAM, QD
     Route: 048
     Dates: end: 20180904
  2. LEVOTHYROX [Concomitant]
     Active Substance: LEVOTHYROXINE
  3. LARGACTIL [Suspect]
     Active Substance: CHLORPROMAZINE
     Dosage: 21 MILLIGRAM, QD
     Route: 048
     Dates: end: 20180904
  4. TERALITHE [Interacting]
     Active Substance: LITHIUM CARBONATE
     Indication: BIPOLAR DISORDER
     Route: 048
     Dates: end: 20180904
  5. INDAPAMIDE. [Interacting]
     Active Substance: INDAPAMIDE
  6. ZOPICLONE [Concomitant]
     Active Substance: ZOPICLONE
  7. COVERAM [Interacting]
     Active Substance: AMLODIPINE\PERINDOPRIL
     Indication: HYPERTENSION
     Route: 048
     Dates: end: 20180904
  8. OXAZEPAM. [Concomitant]
     Active Substance: OXAZEPAM

REACTIONS (4)
  - Acute kidney injury [Recovered/Resolved]
  - Bladder dilatation [Recovered/Resolved]
  - Confusional state [Recovered/Resolved]
  - Toxic encephalopathy [Recovered/Resolved]

NARRATIVE: CASE EVENT DATE: 20180904
